FAERS Safety Report 9528782 (Version 1)
Quarter: 2013Q2

REPORT INFORMATION
  Report Type: Spontaneous
  Country: FR (occurrence: None)
  Receive Date: 20130408
  Receipt Date: 20130408
  Transmission Date: 20140414
  Serious: Yes (Hospitalization)
  Sender: FDA-Public Use
  Company Number: 221014

PATIENT
  Age: 95 Year
  Sex: Female

DRUGS (1)
  1. INNOHEP [Suspect]
     Route: 058
     Dates: start: 201303

REACTIONS (1)
  - Platelet count increased [None]
